FAERS Safety Report 10706653 (Version 1)
Quarter: 2015Q1

REPORT INFORMATION
  Report Type: Spontaneous
  Country: US (occurrence: None)
  Receive Date: 20150109
  Receipt Date: 20150109
  Transmission Date: 20150721
  Serious: Yes (Life-Threatening, Other)
  Sender: FDA-Public Use
  Company Number: 2014SUP00101

PATIENT
  Age: 53 Year
  Sex: Male

DRUGS (4)
  1. TOPIRAMATE. [Suspect]
     Active Substance: TOPIRAMATE
     Indication: SEIZURE
  2. LAMIVUDINE. [Concomitant]
     Active Substance: LAMIVUDINE
  3. ZIDOVUDINE. [Concomitant]
     Active Substance: ZIDOVUDINE
  4. ATAZANAVIR [Concomitant]
     Active Substance: ATAZANAVIR

REACTIONS (9)
  - Neutrophil count decreased [None]
  - White blood cell count decreased [None]
  - Platelet count decreased [None]
  - Metabolic acidosis [None]
  - Pneumonia [None]
  - Staphylococcus test positive [None]
  - Escherichia test positive [None]
  - Hypokalaemia [None]
  - Septic shock [None]
